FAERS Safety Report 13639974 (Version 1)
Quarter: 2017Q2

REPORT INFORMATION
  Report Type: Spontaneous
  Country: US (occurrence: US)
  Receive Date: 20170609
  Receipt Date: 20170609
  Transmission Date: 20170830
  Serious: No
  Sender: FDA-Public Use
  Company Number: US-ROCHE-698835

PATIENT
  Age: 12 Year
  Sex: Female
  Weight: 36.3 kg

DRUGS (1)
  1. CLONAZEPAM. [Suspect]
     Active Substance: CLONAZEPAM
     Indication: CYCLIC VOMITING SYNDROME
     Route: 048

REACTIONS (3)
  - Dyspnoea [Unknown]
  - Lower respiratory tract congestion [Unknown]
  - Secretion discharge [Unknown]
